FAERS Safety Report 4791655-0 (Version None)
Quarter: 2005Q4

REPORT INFORMATION
  Report Type: 
  Country: None (occurrence: None)
  Receive Date: 20051007
  Receipt Date: 20051003
  Transmission Date: 20060501
  Serious: Yes (Death, Other)
  Sender: FDA-Public Use
  Company Number: 2005GB01920

PATIENT
  Age: 75 Year
  Sex: Female

DRUGS (7)
  1. ATENOLOL [Suspect]
     Route: 065
  2. ZOTON [Concomitant]
     Route: 065
  3. ASPIRIN [Concomitant]
     Route: 065
  4. LISINOPRIL [Concomitant]
     Route: 065
  5. GLYCERYL TRINITRATE [Concomitant]
     Route: 065
  6. FUROSEMIDE [Concomitant]
     Route: 065
  7. ATORVASTATIN [Concomitant]
     Route: 065

REACTIONS (7)
  - COLON CANCER [None]
  - GASTROINTESTINAL HAEMORRHAGE [None]
  - LOWER RESPIRATORY TRACT INFECTION [None]
  - MYOCARDIAL INFARCTION [None]
  - NARCOTIC INTOXICATION [None]
  - OBSTRUCTIVE AIRWAYS DISORDER [None]
  - PULMONARY OEDEMA [None]
